FAERS Safety Report 13430005 (Version 3)
Quarter: 2017Q2

REPORT INFORMATION
  Report Type: Spontaneous
  Country: US (occurrence: US)
  Receive Date: 20170412
  Receipt Date: 20170531
  Transmission Date: 20170830
  Serious: No
  Sender: FDA-Public Use
  Company Number: US-009507513-1704USA002128

PATIENT
  Age: 20 Year
  Sex: Female
  Weight: 54.42 kg

DRUGS (1)
  1. NUVARING [Suspect]
     Active Substance: ETHINYL ESTRADIOL\ETONOGESTREL
     Indication: MENSTRUAL CYCLE MANAGEMENT
     Dosage: 1 DF, QM (3 WEEKS IN, 1 WEEK OUT)
     Route: 067
     Dates: start: 201612

REACTIONS (2)
  - Product use in unapproved indication [Unknown]
  - Fungal infection [Unknown]

NARRATIVE: CASE EVENT DATE: 201612
